FAERS Safety Report 7270537-9 (Version None)
Quarter: 2011Q1

REPORT INFORMATION
  Report Type: 
  Country: None (occurrence: None)
  Receive Date: 20110202
  Receipt Date: 20110118
  Transmission Date: 20110831
  Serious: Yes (Other)
  Sender: FDA-Public Use
  Company Number: JP-AMGEN-US347520

PATIENT
  Age: 62 Year
  Sex: Female
  Weight: 54 kg

DRUGS (6)
  1. BUCILLAMINE [Concomitant]
     Dosage: 100 MG, QD
     Route: 048
     Dates: start: 20071221, end: 20080526
  2. ISONIAZID [Concomitant]
     Dosage: 150 MG, QD
     Route: 048
     Dates: start: 20080117, end: 20080719
  3. ENBREL [Suspect]
     Indication: RHEUMATOID ARTHRITIS
     Dosage: 25 MG, 2 TIMES/WK
     Route: 058
     Dates: start: 20080220, end: 20081129
  4. METOLATE [Suspect]
     Dosage: 6 MG, QWK
     Route: 048
     Dates: start: 20080117, end: 20081024
  5. LOXONIN                            /00890701/ [Concomitant]
     Dosage: 2 UNK, QD
     Route: 061
     Dates: start: 20071221, end: 20080415
  6. FOLIAMIN [Concomitant]
     Dosage: 5 MG, QWK
     Route: 048
     Dates: start: 20071221, end: 20081024

REACTIONS (1)
  - ORGANISING PNEUMONIA [None]
